FAERS Safety Report 24770661 (Version 1)
Quarter: 2024Q4

REPORT INFORMATION
  Report Type: Spontaneous
  Country: CN (occurrence: CN)
  Receive Date: 20241224
  Receipt Date: 20241224
  Transmission Date: 20250115
  Serious: Yes (Life-Threatening, Hospitalization, Other)
  Sender: BAYER HEALTHCARE PHARMACEUTICALS INC.
  Company Number: CN-BAYER-2024A180947

PATIENT
  Age: 50 Year
  Sex: Male
  Weight: 65 kg

DRUGS (2)
  1. ULTRAVIST [Suspect]
     Active Substance: IOPROMIDE
     Indication: Arteriogram carotid
     Dosage: 40 ML, ONCE
     Route: 042
     Dates: start: 20241217, end: 20241217
  2. ULTRAVIST [Suspect]
     Active Substance: IOPROMIDE
     Indication: Dizziness

REACTIONS (5)
  - Anaphylactic shock [Recovering/Resolving]
  - Respiratory rate increased [None]
  - Blood pressure systolic decreased [None]
  - Confusional state [Recovering/Resolving]
  - Discomfort [None]

NARRATIVE: CASE EVENT DATE: 20241217
